FAERS Safety Report 19001608 (Version 3)
Quarter: 2021Q3

REPORT INFORMATION
  Report Type: Spontaneous
  Country: US (occurrence: US)
  Receive Date: 20210312
  Receipt Date: 20210908
  Transmission Date: 20211014
  Serious: No
  Sender: FDA-Public Use
  Company Number: US-FARMAPROD-202011-1466

PATIENT
  Sex: Male

DRUGS (7)
  1. LYNPARZA [Concomitant]
     Active Substance: OLAPARIB
  2. OXERVATE [Suspect]
     Active Substance: CENEGERMIN-BKBJ
     Indication: NEUROTROPHIC KERATOPATHY
     Route: 047
     Dates: start: 20201029, end: 20201222
  3. WARFARIN SODIUM. [Concomitant]
     Active Substance: WARFARIN SODIUM
  4. CARTIA XT [Concomitant]
     Active Substance: DILTIAZEM HYDROCHLORIDE
     Dosage: CAPSULE SR 24H
  5. OXERVATE [Suspect]
     Active Substance: CENEGERMIN-BKBJ
     Route: 047
     Dates: start: 20210112
  6. TIMOLOL MALEATE. [Concomitant]
     Active Substance: TIMOLOL MALEATE
  7. DORZOLAMIDE [Concomitant]
     Active Substance: DORZOLAMIDE

REACTIONS (12)
  - Eye pain [Not Recovered/Not Resolved]
  - Eyelid pain [Unknown]
  - Abnormal sensation in eye [Unknown]
  - Drug ineffective [Unknown]
  - Product storage error [Unknown]
  - Vision blurred [Not Recovered/Not Resolved]
  - Eye discharge [Not Recovered/Not Resolved]
  - Product administration error [Unknown]
  - Photophobia [Unknown]
  - Wrong technique in product usage process [Unknown]
  - Ocular discomfort [Unknown]
  - Visual impairment [Unknown]
